FAERS Safety Report 10056634 (Version 1)
Quarter: 2014Q2

REPORT INFORMATION
  Report Type: Report from Study
  Country: US (occurrence: US)
  Receive Date: 20140403
  Receipt Date: 20140403
  Transmission Date: 20141212
  Serious: Yes (Other)
  Sender: FDA-Public Use
  Company Number: US-JNJFOC-20140317269

PATIENT
  Sex: Female
  Weight: 90.72 kg

DRUGS (9)
  1. SIMPONI [Suspect]
     Indication: PSORIATIC ARTHROPATHY
     Route: 058
     Dates: start: 201403
  2. SIMPONI [Suspect]
     Indication: PSORIATIC ARTHROPATHY
     Route: 058
     Dates: end: 2013
  3. METHOTREXATE [Concomitant]
     Indication: PSORIATIC ARTHROPATHY
     Route: 048
     Dates: start: 2005
  4. CELEBREX [Concomitant]
     Indication: OSTEOARTHRITIS
     Route: 048
     Dates: start: 2005
  5. SYNTHROID [Concomitant]
     Indication: THYROID DISORDER
     Route: 048
     Dates: start: 2000
  6. PRILOSEC [Concomitant]
     Indication: GASTROOESOPHAGEAL REFLUX DISEASE
     Route: 048
     Dates: start: 2000
  7. PAXIL [Concomitant]
     Indication: DEPRESSION
     Route: 048
     Dates: start: 2000
  8. VYTORIN [Concomitant]
     Indication: BLOOD CHOLESTEROL INCREASED
     Dosage: 10-40MG
     Route: 048
     Dates: start: 2000
  9. LISINOPRIL [Concomitant]
     Indication: HYPERTENSION
     Route: 048
     Dates: start: 2000

REACTIONS (2)
  - Infected cyst [Recovered/Resolved]
  - Staphylococcal infection [Recovered/Resolved]
